FAERS Safety Report 15084089 (Version 1)
Quarter: 2018Q2

REPORT INFORMATION
  Report Type: Spontaneous
  Country: US (occurrence: US)
  Receive Date: 20180628
  Receipt Date: 20180628
  Transmission Date: 20180711
  Serious: Yes (Hospitalization, Other)
  Sender: FDA-Public Use
  Company Number: US-AMGEN-USASP2018082904

PATIENT
  Age: 50 Year
  Sex: Male
  Weight: 70.75 kg

DRUGS (6)
  1. ARANESP [Suspect]
     Active Substance: DARBEPOETIN ALFA
     Dosage: 300 MUG, UNK
     Route: 058
     Dates: start: 20180403, end: 20180530
  2. ARANESP [Suspect]
     Active Substance: DARBEPOETIN ALFA
     Indication: CHRONIC KIDNEY DISEASE
     Dosage: 60 MUG, UNK
     Route: 058
     Dates: start: 20161019, end: 20171128
  3. ARANESP [Suspect]
     Active Substance: DARBEPOETIN ALFA
     Dosage: 200 MUG, UNK
     Route: 058
     Dates: start: 20180306
  4. ARANESP [Suspect]
     Active Substance: DARBEPOETIN ALFA
     Dosage: 100 MUG, UNK
     Route: 058
     Dates: start: 20180130
  5. ARANESP [Suspect]
     Active Substance: DARBEPOETIN ALFA
     Dosage: 400 MUG, UNK
     Route: 058
  6. IMURAN [Concomitant]
     Active Substance: AZATHIOPRINE
     Indication: TRANSPLANT
     Dosage: 25-100 MG, QD
     Route: 048
     Dates: start: 20140903, end: 20180508

REACTIONS (3)
  - Renal impairment [Unknown]
  - Aplasia pure red cell [Not Recovered/Not Resolved]
  - Anaemia [Unknown]

NARRATIVE: CASE EVENT DATE: 201802
